FAERS Safety Report 10518563 (Version 5)
Quarter: 2014Q4

REPORT INFORMATION
  Report Type: Report from Study
  Country: IT (occurrence: IT)
  Receive Date: 20141015
  Receipt Date: 20141015
  Transmission Date: 20150528
  Serious: Yes (Other)
  Sender: FDA-Public Use
  Company Number: IT-LEO PHARMA-221531

PATIENT
  Age: 73 Year
  Sex: Female
  Weight: 76 kg

DRUGS (2)
  1. PICATO [Suspect]
     Active Substance: INGENOL MEBUTATE
     Indication: ACTINIC KERATOSIS
     Route: 061
     Dates: start: 20130430, end: 20130502
  2. PICATO [Suspect]
     Active Substance: INGENOL MEBUTATE
     Route: 061
     Dates: start: 20130430, end: 20130501

REACTIONS (2)
  - Application site ulcer [Not Recovered/Not Resolved]
  - Skin ulcer [Not Recovered/Not Resolved]

NARRATIVE: CASE EVENT DATE: 20130503
